FAERS Safety Report 9691260 (Version 5)
Quarter: 2017Q2

REPORT INFORMATION
  Report Type: Report from Study
  Country: US (occurrence: US)
  Receive Date: 20131115
  Receipt Date: 20170523
  Transmission Date: 20170830
  Serious: Yes (Other)
  Sender: FDA-Public Use
  Company Number: US-ROCHE-1184429

PATIENT

DRUGS (2)
  1. RITUXIMAB [Suspect]
     Active Substance: RITUXIMAB
     Indication: CHRONIC LYMPHOCYTIC LEUKAEMIA
     Dosage: FOR WEEKS 1 TO 4 (CYCLE 1)
     Route: 042
  2. IBRUTINIB [Suspect]
     Active Substance: IBRUTINIB
     Indication: CHRONIC LYMPHOCYTIC LEUKAEMIA
     Route: 048

REACTIONS (11)
  - Neuropathy peripheral [Unknown]
  - Anaemia [Unknown]
  - Pneumonia [Unknown]
  - Neutropenia [Unknown]
  - Atrial fibrillation [Unknown]
  - Lung infection [Unknown]
  - Enthesopathy [Unknown]
  - Arthralgia [Unknown]
  - Thrombocytopenia [Unknown]
  - Upper respiratory tract infection [Unknown]
  - Transaminases increased [Unknown]
